FAERS Safety Report 11932036 (Version 2)
Quarter: 2016Q2

REPORT INFORMATION
  Report Type: Spontaneous
  Country: US (occurrence: US)
  Receive Date: 20160120
  Receipt Date: 20160630
  Transmission Date: 20160815
  Serious: No
  Sender: FDA-Public Use
  Company Number: US-PFIZER INC-2015468708

PATIENT
  Age: 58 Year
  Sex: Female
  Weight: 62.59 kg

DRUGS (9)
  1. ACETAZOLAMIDE. [Concomitant]
     Active Substance: ACETAZOLAMIDE
     Dosage: 250 MG, UNK
  2. FLUCONAZOLE. [Concomitant]
     Active Substance: FLUCONAZOLE
     Dosage: 200 MG, UNK
  3. XELJANZ [Suspect]
     Active Substance: TOFACITINIB CITRATE
     Indication: RHEUMATOID ARTHRITIS
     Dosage: 5 MG, 2X/DAY
     Route: 048
     Dates: start: 20150915
  4. TALWIN [Concomitant]
     Active Substance: PENTAZOCINE LACTATE
     Dosage: UNK (30 MG/M)
  5. TOPIRAMATE. [Concomitant]
     Active Substance: TOPIRAMATE
     Dosage: 100 MG, UNK
  6. NITROFURANTOIN MONO/MAC [Concomitant]
     Active Substance: NITROFURANTOIN\NITROFURANTOIN MONOHYDRATE
     Dosage: 100 MG, UNK
  7. GINGER. [Concomitant]
     Active Substance: GINGER
     Dosage: 500 MG, UNK
  8. PANTOPRAZOLE SODIUM. [Concomitant]
     Active Substance: PANTOPRAZOLE SODIUM
     Dosage: 40 MG, UNK
  9. PENTAZOCINE AND NALOXONE H [Concomitant]
     Dosage: UNK (50MG-0)

REACTIONS (7)
  - Pain in extremity [Recovered/Resolved]
  - Headache [Recovered/Resolved]
  - Disease recurrence [Recovered/Resolved]
  - Abdominal pain [Not Recovered/Not Resolved]
  - Rhinorrhoea [Not Recovered/Not Resolved]
  - Drug ineffective [Not Recovered/Not Resolved]
  - Condition aggravated [Recovered/Resolved]
